FAERS Safety Report 17044360 (Version 1)
Quarter: 2019Q4

REPORT INFORMATION
  Report Type: Report from Study
  Country: NL (occurrence: NL)
  Receive Date: 20191118
  Receipt Date: 20191118
  Transmission Date: 20200122
  Serious: Yes (Other)
  Sender: FDA-Public Use
  Company Number: NL-JNJFOC-20191114084

PATIENT

DRUGS (2)
  1. REMICADE [Suspect]
     Active Substance: INFLIXIMAB
     Indication: PSORIASIS
     Route: 042
  2. STELARA [Suspect]
     Active Substance: USTEKINUMAB
     Indication: PSORIASIS
     Route: 058

REACTIONS (18)
  - Depression [Unknown]
  - Hepatic fibrosis [Unknown]
  - Herpes simplex [Unknown]
  - Diabetes mellitus [Unknown]
  - Haematological malignancy [Unknown]
  - Tuberculosis [Unknown]
  - Autoimmune disorder [Unknown]
  - Neoplasm malignant [Unknown]
  - Skin cancer [Unknown]
  - HIV infection [Unknown]
  - Fungal infection [Unknown]
  - Cardiovascular disorder [Unknown]
  - Hepatitis [Unknown]
  - Herpes zoster [Unknown]
  - Injection site reaction [Unknown]
  - Malignant melanoma [Unknown]
  - Infection [Unknown]
  - Nervous system disorder [Unknown]
